FAERS Safety Report 5738347-9 (Version None)
Quarter: 2008Q2

REPORT INFORMATION
  Report Type: 
  Country: None (occurrence: None)
  Receive Date: 20080513
  Receipt Date: 20080429
  Transmission Date: 20081010
  Serious: Yes (Disabling)
  Sender: FDA-Public Use
  Company Number: APP200800150

PATIENT
  Age: 44 Year
  Sex: Male
  Weight: 96.1626 kg

DRUGS (9)
  1. SENSORCAINE [Suspect]
     Indication: MUSCULOSKELETAL PAIN
     Dosage: 270 ML, CONTINOUS VIA PAIN PUMP
     Dates: start: 20040512
  2. SENSORCAINE [Suspect]
     Indication: MUSCULOSKELETAL PAIN
     Dosage: 270 ML, CONTINOUS VIA PAIN PUMP
     Dates: start: 20040922
  3. XYLOCAINE W/ EPINEPHRENE [Suspect]
     Indication: MUSCULOSKELETAL PAIN
     Dosage: 30 ML, RIGHT SHOULDER, INJECTION; 22 ML, RIGHT SHOULDER
     Dates: start: 20040512, end: 20040512
  4. XYLOCAINE W/ EPINEPHRENE [Suspect]
     Indication: MUSCULOSKELETAL PAIN
     Dosage: 30 ML, RIGHT SHOULDER, INJECTION; 22 ML, RIGHT SHOULDER
     Dates: start: 20040922, end: 20040922
  5. XYLOCAINE [Suspect]
     Indication: MUSCULOSKELETAL PAIN
     Dosage: 270 ML, CONTINUOUS VIA PAIN PUMP
     Dates: start: 20040922
  6. DONJOY PAIN PUMP [Suspect]
     Indication: MUSCULOSKELETAL PAIN
     Dates: start: 20040512
  7. DONJOY PAIN PUMP [Suspect]
     Indication: MUSCULOSKELETAL PAIN
     Dates: start: 20040922
  8. EPINEPHRINE [Concomitant]
  9. LACTATED RINGERS(FLEBOBAG RING LACT) [Concomitant]

REACTIONS (3)
  - CHONDROLYSIS [None]
  - MUSCULOSKELETAL DISORDER [None]
  - MUSCULOSKELETAL PAIN [None]
